FAERS Safety Report 7508362-3 (Version None)
Quarter: 2011Q2

REPORT INFORMATION
  Report Type: 
  Country: None (occurrence: None)
  Receive Date: 20110519
  Receipt Date: 20110505
  Transmission Date: 20111010
  Serious: Yes (Hospitalization, Other)
  Sender: FDA-Public Use
  Company Number: 2010SP019235

PATIENT
  Age: 29 Year
  Sex: Female
  Weight: 99.7913 kg

DRUGS (3)
  1. COUMADIN [Suspect]
     Indication: DEEP VEIN THROMBOSIS
     Dates: start: 20080101, end: 20090101
  2. COUMADIN [Suspect]
     Indication: PULMONARY EMBOLISM
     Dates: start: 20080101, end: 20090101
  3. NUVARING [Suspect]
     Indication: CONTRACEPTION
     Dates: start: 20070101, end: 20080401

REACTIONS (2)
  - PULMONARY EMBOLISM [None]
  - DEEP VEIN THROMBOSIS [None]
